FAERS Safety Report 15387452 (Version 3)
Quarter: 2019Q2

REPORT INFORMATION
  Report Type: Spontaneous
  Country: PT (occurrence: PT)
  Receive Date: 20180914
  Receipt Date: 20190404
  Transmission Date: 20190711
  Serious: Yes (Other)
  Sender: FDA-Public Use
  Company Number: PT-MYLANLABS-2018M1067148

PATIENT
  Age: 56 Year
  Sex: Male

DRUGS (2)
  1. LISINOPRIL. [Suspect]
     Active Substance: LISINOPRIL
     Indication: MICROALBUMINURIA
  2. LISINOPRIL. [Suspect]
     Active Substance: LISINOPRIL
     Indication: ALBUMINURIA
     Dosage: 10 MILLIGRAM, QD
     Route: 065

REACTIONS (7)
  - Acidosis hyperchloraemic [Unknown]
  - Renal tubular acidosis [Unknown]
  - Product use in unapproved indication [Unknown]
  - Metabolic acidosis [Unknown]
  - Condition aggravated [Unknown]
  - Hyperkalaemia [Unknown]
  - Concomitant disease aggravated [Unknown]
